FAERS Safety Report 21301185 (Version 2)
Quarter: 2022Q4

REPORT INFORMATION
  Report Type: Spontaneous
  Country: US (occurrence: US)
  Receive Date: 20220907
  Receipt Date: 20221021
  Transmission Date: 20230113
  Serious: No
  Sender: FDA-Public Use
  Company Number: US-drreddys-SPO/USA/22/0153812

PATIENT

DRUGS (1)
  1. BUPRENORPHINE\NALOXONE [Suspect]
     Active Substance: BUPRENORPHINE\NALOXONE
     Indication: Drug withdrawal maintenance therapy
     Dosage: 8MG/2MG
     Route: 060

REACTIONS (8)
  - Feeling abnormal [Unknown]
  - Asthenia [Unknown]
  - Myalgia [Unknown]
  - Constipation [Unknown]
  - Libido decreased [Unknown]
  - Hypersomnia [Unknown]
  - Drug ineffective [Unknown]
  - Product quality issue [Unknown]
